FAERS Safety Report 15384577 (Version 1)
Quarter: 2018Q3

REPORT INFORMATION
  Report Type: Spontaneous
  Country: JP (occurrence: JP)
  Receive Date: 20180914
  Receipt Date: 20180914
  Transmission Date: 20181010
  Serious: Yes (Hospitalization, Other)
  Sender: FDA-Public Use
  Company Number: JP-ORPHAN EUROPE-2054919

PATIENT
  Age: 3 Month
  Sex: Female
  Weight: 4.48 kg

DRUGS (6)
  1. CARBAGLU [Suspect]
     Active Substance: CARGLUMIC ACID
     Indication: HYPERAMMONAEMIA
  2. PRODUCT NAME: L CARTIN FF?GENERIC NAME: LEVOCARNITINE [Concomitant]
     Route: 048
  3. PRODUCT NAME: URINMET?GENERIC NAME: POTASSIUM CITRATE, SODIUM CITRATE [Concomitant]
     Route: 048
  4. PRODUCT NAME: VITAMEDIN?GENERIC NAME: BENFOTIAMINE, CYANOCOBALAMIN, PY [Concomitant]
     Route: 048
  5. FLAGYL [Concomitant]
     Active Substance: METRONIDAZOLE\METRONIDAZOLE HYDROCHLORIDE
     Route: 048
  6. PRODUCT NAME: E KEPPRA?GENERIC NAME: LEVETIRACETAM [Concomitant]
     Route: 048

REACTIONS (2)
  - Anaemia [Unknown]
  - Sepsis [Recovered/Resolved]

NARRATIVE: CASE EVENT DATE: 20170725
